FAERS Safety Report 4969498-4 (Version None)
Quarter: 2006Q2

REPORT INFORMATION
  Report Type: 
  Country: None (occurrence: None)
  Receive Date: 20060406
  Receipt Date: 20060322
  Transmission Date: 20061013
  Serious: Yes (Death, Life-Threatening, Hospitalization)
  Sender: FDA-Public Use
  Company Number: P200600002

PATIENT
  Age: 81 Year
  Sex: Male

DRUGS (3)
  1. PLENAXIS [Suspect]
     Indication: PROSTATE CANCER
     Dosage: 100 MG, SINGLE, INTRAMUSCULAR
     Route: 030
     Dates: start: 20050203, end: 20050203
  2. PLENAXIS [Suspect]
     Indication: PROSTATE CANCER
     Dosage: 100 MG, SINGLE, INTRAMUSCULAR
     Route: 030
     Dates: start: 20050804, end: 20050804
  3. VASOTEC [Concomitant]

REACTIONS (13)
  - BLOOD PRESSURE INCREASED [None]
  - BREATH SOUNDS ABNORMAL [None]
  - CARDIOMEGALY [None]
  - CHEST PAIN [None]
  - COUGH [None]
  - CREATININE RENAL CLEARANCE DECREASED [None]
  - EXTRASYSTOLES [None]
  - PROSTATIC SPECIFIC ANTIGEN ABNORMAL [None]
  - RENAL FAILURE [None]
  - SICK SINUS SYNDROME [None]
  - TROPONIN INCREASED [None]
  - VENTILATION/PERFUSION SCAN ABNORMAL [None]
  - VENTRICULAR HYPERTROPHY [None]
